FAERS Safety Report 9056855 (Version 1)
Quarter: 2013Q1

REPORT INFORMATION
  Report Type: Report from Study
  Country: JP (occurrence: JP)
  Receive Date: 20130201
  Receipt Date: 20130201
  Transmission Date: 20140127
  Serious: Yes (Other)
  Sender: FDA-Public Use
  Company Number: JP-GLAXOSMITHKLINE-B0860273A

PATIENT
  Age: 39 None
  Sex: Female
  Weight: 41 kg

DRUGS (9)
  1. TYKERB [Suspect]
     Indication: BREAST CANCER
     Route: 048
     Dates: start: 20091119, end: 20100505
  2. XELODA [Suspect]
     Route: 048
     Dates: start: 20091119, end: 20100430
  3. ALLEGRA [Concomitant]
     Indication: LYMPHOEDEMA
     Route: 048
  4. RINDERON VG [Concomitant]
     Indication: LYMPHOEDEMA
     Route: 061
  5. OXYCONTIN [Concomitant]
     Indication: BREAST CANCER
     Route: 048
  6. LOXONIN [Concomitant]
     Indication: BREAST CANCER
     Route: 048
  7. MUCOSTA [Concomitant]
     Indication: GASTRITIS PROPHYLAXIS
     Route: 048
  8. DASEN [Concomitant]
     Indication: PROPHYLAXIS
     Route: 048
  9. OXINORM [Concomitant]
     Indication: BREAST CANCER
     Route: 048

REACTIONS (10)
  - Keratitis [Recovering/Resolving]
  - Rash [Recovering/Resolving]
  - Diarrhoea [Recovered/Resolved]
  - Pyrexia [Recovering/Resolving]
  - Local swelling [Recovering/Resolving]
  - Paronychia [Recovered/Resolved]
  - Diarrhoea [Recovered/Resolved]
  - Diarrhoea [Recovered/Resolved]
  - Abdominal pain upper [Recovered/Resolved]
  - Blood bilirubin increased [Recovered/Resolved]
